FAERS Safety Report 10984020 (Version 1)
Quarter: 2015Q2

REPORT INFORMATION
  Report Type: Spontaneous
  Country: US (occurrence: US)
  Receive Date: 20150403
  Receipt Date: 20150403
  Transmission Date: 20150821
  Serious: No
  Sender: FDA-Public Use
  Company Number: US-GLAXOSMITHKLINE-A0053645A

PATIENT
  Sex: Female
  Weight: 55 kg

DRUGS (2)
  1. IMITREX SPRAY [Suspect]
     Active Substance: SUMATRIPTAN
     Indication: MIGRAINE
     Dosage: 5 MG, PRN
     Route: 065
  2. RELPAX [Concomitant]
     Active Substance: ELETRIPTAN HYDROBROMIDE

REACTIONS (5)
  - Fibromyalgia [Not Recovered/Not Resolved]
  - Drug ineffective [Unknown]
  - Chronic fatigue syndrome [Not Recovered/Not Resolved]
  - Ear infection [Unknown]
  - Somnolence [Unknown]
